FAERS Safety Report 4824612-6 (Version None)
Quarter: 2005Q4

REPORT INFORMATION
  Report Type: 
  Country: None (occurrence: None)
  Receive Date: 20051108
  Receipt Date: 20051025
  Transmission Date: 20060501
  Serious: Yes (Hospitalization)
  Sender: FDA-Public Use
  Company Number: EWC051046975

PATIENT
  Age: 47 Year
  Sex: Female

DRUGS (6)
  1. HUMULIN N [Suspect]
     Indication: DIABETES MELLITUS
     Dosage: 10 IU IN THE EVENING
  2. ACTRAPID (INSULIN HUMAN) [Concomitant]
  3. DOXILEK (CALCIUM DOBESILATE) [Concomitant]
  4. VENORUTON FORTE (TROXERUTIN) [Concomitant]
  5. VOLTAREN/SCH/(DICLOFENAC POTASSIUM) [Concomitant]
  6. TIMOLOL MALEATE [Concomitant]

REACTIONS (3)
  - BLINDNESS UNILATERAL [None]
  - RETINAL HAEMORRHAGE [None]
  - RETINAL VEIN THROMBOSIS [None]
